FAERS Safety Report 14683402 (Version 1)
Quarter: 2018Q1

REPORT INFORMATION
  Report Type: Spontaneous
  Country: US (occurrence: US)
  Receive Date: 20180327
  Receipt Date: 20180327
  Transmission Date: 20180509
  Serious: No
  Sender: FDA-Public Use
  Company Number: US-PFIZER INC-2018126156

PATIENT
  Age: 9 Year
  Sex: Male
  Weight: 27.22 kg

DRUGS (3)
  1. QUILLICHEW ER [Suspect]
     Active Substance: METHYLPHENIDATE HYDROCHLORIDE
     Indication: ATTENTION DEFICIT/HYPERACTIVITY DISORDER
     Dosage: 20MG
     Dates: start: 201801
  2. QUILLICHEW ER [Suspect]
     Active Substance: METHYLPHENIDATE HYDROCHLORIDE
     Dosage: 30MG
     Dates: start: 201803
  3. QUILLICHEW ER [Suspect]
     Active Substance: METHYLPHENIDATE HYDROCHLORIDE
     Dosage: 20MG
     Dates: start: 201803

REACTIONS (1)
  - Drug intolerance [Not Recovered/Not Resolved]

NARRATIVE: CASE EVENT DATE: 201803
